FAERS Safety Report 19947602 (Version 3)
Quarter: 2021Q4

REPORT INFORMATION
  Report Type: Report from Study
  Country: DE (occurrence: DE)
  Receive Date: 20211012
  Receipt Date: 20211124
  Transmission Date: 20220303
  Serious: Yes (Other)
  Sender: FDA-Public Use
  Company Number: DE-TAKEDA-2021TUS061302

PATIENT
  Age: 16 Year
  Sex: Male
  Weight: 80 kg

DRUGS (28)
  1. ADVATE [Suspect]
     Active Substance: ANTIHEMOPHILIC FACTOR, HUMAN RECOMBINANT
     Indication: Prophylaxis
     Dosage: UNK
     Route: 065
     Dates: start: 20050202, end: 20200807
  2. ADVATE [Suspect]
     Active Substance: ANTIHEMOPHILIC FACTOR, HUMAN RECOMBINANT
     Indication: Prophylaxis
     Dosage: UNK
     Route: 065
     Dates: start: 20050202, end: 20200807
  3. ADVATE [Suspect]
     Active Substance: ANTIHEMOPHILIC FACTOR, HUMAN RECOMBINANT
     Indication: Prophylaxis
     Dosage: UNK
     Route: 065
     Dates: start: 20050202, end: 20200807
  4. ADVATE [Suspect]
     Active Substance: ANTIHEMOPHILIC FACTOR, HUMAN RECOMBINANT
     Indication: Factor VIII deficiency
     Dosage: UNK
     Route: 065
     Dates: start: 20050202, end: 20200807
  5. ADVATE [Suspect]
     Active Substance: ANTIHEMOPHILIC FACTOR, HUMAN RECOMBINANT
     Indication: Factor VIII deficiency
     Dosage: UNK
     Route: 065
     Dates: start: 20050202, end: 20200807
  6. ADVATE [Suspect]
     Active Substance: ANTIHEMOPHILIC FACTOR, HUMAN RECOMBINANT
     Indication: Factor VIII deficiency
     Dosage: UNK
     Route: 065
     Dates: start: 20050202, end: 20200807
  7. ADVATE [Suspect]
     Active Substance: ANTIHEMOPHILIC FACTOR, HUMAN RECOMBINANT
     Dosage: UNK
     Route: 065
     Dates: start: 20050220, end: 20200807
  8. ADVATE [Suspect]
     Active Substance: ANTIHEMOPHILIC FACTOR, HUMAN RECOMBINANT
     Dosage: UNK
     Route: 065
     Dates: start: 20050220, end: 20200807
  9. ADVATE [Suspect]
     Active Substance: ANTIHEMOPHILIC FACTOR, HUMAN RECOMBINANT
     Dosage: UNK
     Route: 065
     Dates: start: 20050220, end: 20200807
  10. ADVATE [Suspect]
     Active Substance: ANTIHEMOPHILIC FACTOR, HUMAN RECOMBINANT
     Dosage: 2500 INTERNATIONAL UNIT
     Route: 065
     Dates: start: 20050220, end: 20200807
  11. ADVATE [Suspect]
     Active Substance: ANTIHEMOPHILIC FACTOR, HUMAN RECOMBINANT
     Dosage: 2500 INTERNATIONAL UNIT
     Route: 065
     Dates: start: 20050220, end: 20200807
  12. ADVATE [Suspect]
     Active Substance: ANTIHEMOPHILIC FACTOR, HUMAN RECOMBINANT
     Dosage: 2500 INTERNATIONAL UNIT
     Route: 065
     Dates: start: 20050220, end: 20200807
  13. ADVATE [Suspect]
     Active Substance: ANTIHEMOPHILIC FACTOR, HUMAN RECOMBINANT
     Dosage: 2500 INTERNATIONAL UNIT, BID
     Route: 065
     Dates: start: 20200807, end: 20201210
  14. ADVATE [Suspect]
     Active Substance: ANTIHEMOPHILIC FACTOR, HUMAN RECOMBINANT
     Dosage: 2500 INTERNATIONAL UNIT, BID
     Route: 065
     Dates: start: 20200807, end: 20201210
  15. ADVATE [Suspect]
     Active Substance: ANTIHEMOPHILIC FACTOR, HUMAN RECOMBINANT
     Dosage: 2500 INTERNATIONAL UNIT, BID
     Route: 065
     Dates: start: 20200807, end: 20201210
  16. ADVATE [Suspect]
     Active Substance: ANTIHEMOPHILIC FACTOR, HUMAN RECOMBINANT
     Dosage: 2500 INTERNATIONAL UNIT, BID
     Route: 065
     Dates: start: 20200807
  17. ADVATE [Suspect]
     Active Substance: ANTIHEMOPHILIC FACTOR, HUMAN RECOMBINANT
     Dosage: 2500 INTERNATIONAL UNIT, BID
     Route: 065
     Dates: start: 20200807
  18. ADVATE [Suspect]
     Active Substance: ANTIHEMOPHILIC FACTOR, HUMAN RECOMBINANT
     Dosage: 2500 INTERNATIONAL UNIT, BID
     Route: 065
     Dates: start: 20200807
  19. OMEPRAZOLE [Concomitant]
     Active Substance: OMEPRAZOLE
     Indication: Osteonecrosis
     Dosage: 20 MILLIGRAM, QD
     Route: 048
     Dates: start: 20180118, end: 20180218
  20. MELOXICAM [Concomitant]
     Active Substance: MELOXICAM
     Indication: Osteonecrosis
     Dosage: 15 MILLIGRAM, QD
     Route: 048
     Dates: start: 20180218
  21. CLINDAMYCIN [Concomitant]
     Active Substance: CLINDAMYCIN
     Indication: Thrombosed varicose vein
     Dosage: UNK
     Route: 048
     Dates: start: 20200811, end: 20200826
  22. ENOXAPARIN [Concomitant]
     Active Substance: ENOXAPARIN
     Indication: Thrombosed varicose vein
     Dosage: 40 MILLIGRAM, QD
     Route: 058
     Dates: start: 20200811, end: 20200826
  23. ENOXAPARIN [Concomitant]
     Active Substance: ENOXAPARIN
     Dosage: 20 MILLIGRAM, QD
     Route: 058
     Dates: start: 20200811, end: 20200826
  24. ENOXAPARIN [Concomitant]
     Active Substance: ENOXAPARIN
     Dosage: 20 MILLIGRAM, QD
     Route: 058
     Dates: start: 20200827, end: 20201210
  25. IBUPROFEN [Concomitant]
     Active Substance: IBUPROFEN
     Indication: Osteonecrosis
     Dosage: 60 MILLIGRAM, TID
     Route: 048
     Dates: start: 20180112, end: 20180212
  26. IBUPROFEN [Concomitant]
     Active Substance: IBUPROFEN
     Dosage: 600 MILLIGRAM, TID
     Route: 048
     Dates: start: 20180112, end: 20180212
  27. DIAZEPAM [Concomitant]
     Active Substance: DIAZEPAM
     Indication: Emotional disorder
     Dosage: UNK
     Route: 048
     Dates: start: 20170807, end: 20170918
  28. AMOXICILLIN [Concomitant]
     Active Substance: AMOXICILLIN
     Indication: Influenza
     Dosage: 500 MILLIGRAM, TID
     Route: 048
     Dates: start: 20140219

REACTIONS (1)
  - Jugular vein thrombosis [Recovered/Resolved]

NARRATIVE: CASE EVENT DATE: 20200807
